FAERS Safety Report 11933757 (Version 39)
Quarter: 2025Q2

REPORT INFORMATION
  Report Type: Report from Study
  Country: CA (occurrence: CA)
  Receive Date: 20160121
  Receipt Date: 20250605
  Transmission Date: 20250716
  Serious: Yes (Hospitalization, Other)
  Sender: ROCHE
  Company Number: CA-ROCHE-1434589

PATIENT
  Age: 83 Year
  Sex: Female
  Weight: 87.0 kg

DRUGS (42)
  1. ACTEMRA [Suspect]
     Active Substance: TOCILIZUMAB
     Indication: Giant cell arteritis
     Route: 042
     Dates: start: 20140709, end: 20141126
  2. ACTEMRA [Suspect]
     Active Substance: TOCILIZUMAB
     Indication: Vasculitis
     Route: 042
     Dates: start: 20141223, end: 20151027
  3. ACTEMRA [Suspect]
     Active Substance: TOCILIZUMAB
     Indication: Rheumatoid arthritis
     Route: 042
     Dates: start: 20151124, end: 20160119
  4. ACTEMRA [Suspect]
     Active Substance: TOCILIZUMAB
     Route: 042
     Dates: start: 20160216, end: 20160613
  5. ACTEMRA [Suspect]
     Active Substance: TOCILIZUMAB
     Route: 042
     Dates: start: 20160719, end: 2018
  6. ACTEMRA [Suspect]
     Active Substance: TOCILIZUMAB
     Route: 042
     Dates: start: 2018, end: 2020
  7. ACTEMRA [Suspect]
     Active Substance: TOCILIZUMAB
     Route: 042
     Dates: start: 2020, end: 2020
  8. ACTEMRA [Suspect]
     Active Substance: TOCILIZUMAB
     Route: 042
     Dates: start: 2020, end: 2020
  9. ACTEMRA [Suspect]
     Active Substance: TOCILIZUMAB
     Route: 042
     Dates: start: 20140806
  10. ACTEMRA [Suspect]
     Active Substance: TOCILIZUMAB
     Route: 042
     Dates: start: 20141001
  11. ACTEMRA [Suspect]
     Active Substance: TOCILIZUMAB
     Route: 042
     Dates: start: 20141126
  12. ACTEMRA [Suspect]
     Active Substance: TOCILIZUMAB
     Route: 042
     Dates: start: 20150120
  13. ACTEMRA [Suspect]
     Active Substance: TOCILIZUMAB
     Route: 042
     Dates: start: 20141201
  14. ACTEMRA [Suspect]
     Active Substance: TOCILIZUMAB
     Route: 042
     Dates: start: 20151029
  15. ACTEMRA [Suspect]
     Active Substance: TOCILIZUMAB
     Route: 042
     Dates: start: 201809
  16. ACTEMRA [Suspect]
     Active Substance: TOCILIZUMAB
     Route: 042
     Dates: start: 20140709
  17. ACTEMRA [Suspect]
     Active Substance: TOCILIZUMAB
     Route: 042
     Dates: start: 2020
  18. ACTEMRA [Suspect]
     Active Substance: TOCILIZUMAB
     Route: 042
  19. ACTEMRA [Suspect]
     Active Substance: TOCILIZUMAB
     Route: 042
  20. ACTEMRA [Suspect]
     Active Substance: TOCILIZUMAB
     Route: 042
  21. ACTEMRA [Suspect]
     Active Substance: TOCILIZUMAB
     Route: 042
  22. ACTEMRA [Suspect]
     Active Substance: TOCILIZUMAB
     Route: 042
  23. ACTEMRA [Suspect]
     Active Substance: TOCILIZUMAB
     Route: 042
  24. ACTEMRA [Suspect]
     Active Substance: TOCILIZUMAB
     Route: 042
  25. ACTEMRA [Suspect]
     Active Substance: TOCILIZUMAB
     Route: 042
  26. ACTEMRA [Suspect]
     Active Substance: TOCILIZUMAB
     Route: 042
  27. ACTEMRA [Suspect]
     Active Substance: TOCILIZUMAB
     Route: 042
  28. ACTEMRA [Suspect]
     Active Substance: TOCILIZUMAB
     Route: 042
  29. METFORMIN [Concomitant]
     Active Substance: METFORMIN HYDROCHLORIDE
  30. PANTOPRAZOLE MAGNESIUM [Concomitant]
     Active Substance: PANTOPRAZOLE MAGNESIUM
  31. GLICLAZIDE [Concomitant]
     Active Substance: GLICLAZIDE
     Indication: Product used for unknown indication
  32. PANTOPRAZOLE [Concomitant]
     Active Substance: PANTOPRAZOLE
     Indication: Product used for unknown indication
  33. PREDNISONE [Concomitant]
     Active Substance: PREDNISONE
  34. FOLIC ACID [Concomitant]
     Active Substance: FOLIC ACID
  35. LEUCOVORIN CALCIUM [Concomitant]
     Active Substance: LEUCOVORIN CALCIUM
  36. METHOTREXATE [Concomitant]
     Active Substance: METHOTREXATE
  37. ALENDRONATE [Concomitant]
     Active Substance: ALENDRONATE SODIUM
  38. VITAMIN D3 [Concomitant]
     Active Substance: CHOLECALCIFEROL
  39. OXAZEPAM [Concomitant]
     Active Substance: OXAZEPAM
  40. COENZYME Q10 [Concomitant]
     Active Substance: DIETARY SUPPLEMENT\UBIDECARENONE
     Route: 065
  41. ZOPICLONE [Concomitant]
     Active Substance: ZOPICLONE
     Indication: Product used for unknown indication
  42. ALLOPURINOL [Concomitant]
     Active Substance: ALLOPURINOL
     Indication: Product used for unknown indication

REACTIONS (49)
  - Nasopharyngitis [Unknown]
  - Diverticulitis [Unknown]
  - Chest pain [Recovered/Resolved]
  - Musculoskeletal chest pain [Recovered/Resolved]
  - Pain in extremity [Recovered/Resolved]
  - Cardiac flutter [Recovered/Resolved]
  - Lactic acidosis [Unknown]
  - Gastritis [Unknown]
  - Cataract [Not Recovered/Not Resolved]
  - Alanine aminotransferase increased [Unknown]
  - Blood creatinine increased [Unknown]
  - Blood cholesterol increased [Not Recovered/Not Resolved]
  - Arthropathy [Unknown]
  - Vasospasm [Unknown]
  - Blood pressure increased [Unknown]
  - Poor venous access [Recovered/Resolved]
  - Infusion related reaction [Unknown]
  - Poor venous access [Unknown]
  - Tooth abscess [Recovered/Resolved]
  - Heart rate decreased [Unknown]
  - Joint injury [Unknown]
  - Arthralgia [Recovering/Resolving]
  - Joint swelling [Recovering/Resolving]
  - Blood pressure systolic increased [Unknown]
  - Heart rate decreased [Unknown]
  - Blood pressure diastolic abnormal [Unknown]
  - Nausea [Recovered/Resolved]
  - Blood pressure systolic abnormal [Unknown]
  - Sinusitis [Not Recovered/Not Resolved]
  - Sinusitis [Unknown]
  - Off label use [Unknown]
  - Oropharyngeal blistering [Unknown]
  - Dysphagia [Unknown]
  - Alopecia [Unknown]
  - Weight increased [Unknown]
  - Dizziness [Unknown]
  - Tooth disorder [Unknown]
  - Product use in unapproved indication [Unknown]
  - Weight decreased [Unknown]
  - Flank pain [Unknown]
  - Paraesthesia [Recovering/Resolving]
  - Asthenia [Recovering/Resolving]
  - Ear pain [Not Recovered/Not Resolved]
  - Oropharyngeal pain [Not Recovered/Not Resolved]
  - Root canal infection [Unknown]
  - Off label use [Unknown]
  - Diarrhoea [Unknown]
  - Melaena [Unknown]
  - Pyrexia [Unknown]

NARRATIVE: CASE EVENT DATE: 20250101
